FAERS Safety Report 16435984 (Version 1)
Quarter: 2019Q2

REPORT INFORMATION
  Report Type: Spontaneous
  Country: US (occurrence: US)
  Receive Date: 20190614
  Receipt Date: 20190614
  Transmission Date: 20190711
  Serious: No
  Sender: FDA-Public Use
  Company Number: US-JNJFOC-20170522026

PATIENT
  Sex: Female

DRUGS (5)
  1. TYLENOL ARTHRITIS PAIN [Suspect]
     Active Substance: ACETAMINOPHEN
     Indication: PAIN
     Route: 065
  2. TRAMADOL. [Concomitant]
     Active Substance: TRAMADOL
     Indication: PAIN
     Route: 065
  3. TIMOLOL. [Concomitant]
     Active Substance: TIMOLOL
     Indication: BLINDNESS
     Dosage: DOSE: 1 DROP EACH EYE EVERY MORNING, 10 OR MORE YEARS
     Route: 065
  4. TYLENOL ARTHRITIS PAIN [Suspect]
     Active Substance: ACETAMINOPHEN
     Route: 065
  5. LUMIGAN [Concomitant]
     Active Substance: BIMATOPROST
     Indication: BLINDNESS
     Dosage: DOSAGE: 1 DROP EACH EYE EVERY EVENING, 10 OR MORE YEARS
     Route: 065

REACTIONS (1)
  - Therapeutic product effect incomplete [Unknown]
